FAERS Safety Report 17811280 (Version 1)
Quarter: 2020Q2

REPORT INFORMATION
  Report Type: Spontaneous
  Country: US (occurrence: US)
  Receive Date: 20200520
  Receipt Date: 20200520
  Transmission Date: 20200714
  Serious: Yes (Other)
  Sender: FDA-Public Use
  Company Number: None

PATIENT
  Age: 65 Year
  Sex: Male

DRUGS (10)
  1. AMITRIPTYLINE [Concomitant]
     Active Substance: AMITRIPTYLINE
  2. CAPSAICIN. [Concomitant]
     Active Substance: CAPSAICIN
  3. SUBOXONE [Concomitant]
     Active Substance: BUPRENORPHINE HYDROCHLORIDE\NALOXONE HYDROCHLORIDE
  4. CYCLOBENZAPRINE. [Concomitant]
     Active Substance: CYCLOBENZAPRINE
  5. MELOXICAM. [Concomitant]
     Active Substance: MELOXICAM
  6. NARCAN [Concomitant]
     Active Substance: NALOXONE HYDROCHLORIDE
  7. DULOXETINE DR [Concomitant]
     Active Substance: DULOXETINE
  8. COLACE [Concomitant]
     Active Substance: DOCUSATE SODIUM
  9. GABAPENTIN. [Concomitant]
     Active Substance: GABAPENTIN
  10. EPCLUSA [Suspect]
     Active Substance: SOFOSBUVIR\VELPATASVIR
     Indication: CHRONIC HEPATITIS C
     Dosage: ?          OTHER DOSE:400MG/100MG;?
     Route: 048
     Dates: start: 20200226, end: 20200506

REACTIONS (4)
  - Blood cannabinoids [None]
  - Psychotic disorder [None]
  - Mental disorder [None]
  - Hallucination [None]

NARRATIVE: CASE EVENT DATE: 20200506
